FAERS Safety Report 4415870-0 (Version None)
Quarter: 2004Q3

REPORT INFORMATION
  Report Type: 
  Country: None (occurrence: None)
  Receive Date: 20040805
  Receipt Date: 20040413
  Transmission Date: 20050211
  Serious: No
  Sender: FDA-Public Use
  Company Number: US-GLAXOSMITHKLINE-A0506957A

PATIENT
  Age: 57 Year
  Sex: Female

DRUGS (3)
  1. AVANDAMET [Suspect]
     Route: 048
     Dates: start: 20031001
  2. LIPITOR [Concomitant]
  3. LISINOPRIL [Concomitant]

REACTIONS (3)
  - GLYCOSYLATED HAEMOGLOBIN DECREASED [None]
  - NAUSEA [None]
  - NERVOUSNESS [None]
